FAERS Safety Report 19260772 (Version 1)
Quarter: 2021Q2

REPORT INFORMATION
  Report Type: Spontaneous
  Country: US (occurrence: US)
  Receive Date: 20210515
  Receipt Date: 20210515
  Transmission Date: 20210717
  Serious: No
  Sender: FDA-Public Use
  Company Number: US-JNJFOC-20210518798

PATIENT
  Age: 28 Month
  Sex: Female

DRUGS (1)
  1. CHILDRENS MOTRIN [Suspect]
     Active Substance: IBUPROFEN
     Indication: COUGH
     Route: 048
     Dates: start: 20210320

REACTIONS (4)
  - Pruritus [Recovering/Resolving]
  - Product use in unapproved indication [Unknown]
  - Expired product administered [Unknown]
  - Swelling face [Recovering/Resolving]

NARRATIVE: CASE EVENT DATE: 20210320
